FAERS Safety Report 4655865-5 (Version None)
Quarter: 2005Q2

REPORT INFORMATION
  Report Type: 
  Country: None (occurrence: None)
  Receive Date: 20050505
  Receipt Date: 20050505
  Transmission Date: 20051028
  Serious: Yes (Other)
  Sender: FDA-Public Use
  Company Number: None

PATIENT
  Age: 76 Year
  Sex: Male
  Weight: 90.2658 kg

DRUGS (1)
  1. RANITIDINE [Suspect]
     Indication: PEPTIC ULCER
     Dosage: 300MG DAILY
     Dates: start: 20050201, end: 20050301

REACTIONS (1)
  - DRUG INEFFECTIVE [None]
